FAERS Safety Report 14945214 (Version 5)
Quarter: 2018Q4

REPORT INFORMATION
  Report Type: Report from Study
  Country: DE (occurrence: DE)
  Receive Date: 20180529
  Receipt Date: 20181116
  Transmission Date: 20190204
  Serious: No
  Sender: FDA-Public Use
  Company Number: DE-ROCHE-2121184

PATIENT
  Age: 50 Year
  Sex: Female

DRUGS (14)
  1. DEKRISTOL [Concomitant]
     Active Substance: CHOLECALCIFEROL
     Route: 065
  2. BACLOFENUM [Concomitant]
     Route: 065
  3. OCREVUS [Suspect]
     Active Substance: OCRELIZUMAB
     Dosage: SECOND DOSE
     Route: 042
     Dates: start: 20180515
  4. AMITRIPTYLINE [Suspect]
     Active Substance: AMITRIPTYLINE
     Indication: PRODUCT USED FOR UNKNOWN INDICATION
     Route: 065
  5. AMITRIPTYLINE [Suspect]
     Active Substance: AMITRIPTYLINE
     Route: 065
  6. OCREVUS [Suspect]
     Active Substance: OCRELIZUMAB
     Indication: RELAPSING-REMITTING MULTIPLE SCLEROSIS
     Route: 042
     Dates: start: 20180503
  7. OCREVUS [Suspect]
     Active Substance: OCRELIZUMAB
     Route: 042
     Dates: start: 20180517
  8. RAMIPRIL. [Concomitant]
     Active Substance: RAMIPRIL
     Route: 065
  9. PANTOPRAZOL [Concomitant]
     Active Substance: PANTOPRAZOLE SODIUM
     Route: 065
  10. ASPIRIN. [Concomitant]
     Active Substance: ASPIRIN
     Route: 048
  11. AMITRIPTYLINE [Suspect]
     Active Substance: AMITRIPTYLINE
     Route: 065
  12. CARBAMAZEPINE. [Concomitant]
     Active Substance: CARBAMAZEPINE
     Dosage: 1-0-0
     Route: 065
  13. FOLVERLAN [Concomitant]
     Active Substance: FOLIC ACID
     Route: 065
  14. RAMIPRIL. [Concomitant]
     Active Substance: RAMIPRIL
     Route: 065

REACTIONS (14)
  - Nausea [Not Recovered/Not Resolved]
  - Acquired diaphragmatic eventration [Not Recovered/Not Resolved]
  - Feeling abnormal [Not Recovered/Not Resolved]
  - Pruritus [Recovered/Resolved]
  - Insomnia [Recovered/Resolved]
  - Headache [Recovered/Resolved]
  - Dizziness [Recovered/Resolved]
  - C-reactive protein increased [Recovering/Resolving]
  - Infusion related reaction [Recovered/Resolved]
  - Fatigue [Recovered/Resolved]
  - Dyspepsia [Not Recovered/Not Resolved]
  - Infection [Recovered/Resolved]
  - Abdominal pain upper [Not Recovered/Not Resolved]
  - Terminal insomnia [Not Recovered/Not Resolved]

NARRATIVE: CASE EVENT DATE: 20180503
